FAERS Safety Report 5915915-2 (Version None)
Quarter: 2008Q4

REPORT INFORMATION
  Report Type: 
  Country: None (occurrence: None)
  Receive Date: 20081010
  Receipt Date: 20080929
  Transmission Date: 20090506
  Serious: Yes (Other)
  Sender: FDA-Public Use
  Company Number: US-PFIZER INC-2008026059

PATIENT
  Sex: Female
  Weight: 49.9 kg

DRUGS (18)
  1. CHANTIX [Suspect]
     Indication: SMOKING CESSATION THERAPY
     Dates: start: 20071206, end: 20071201
  2. CHANTIX [Suspect]
     Indication: TOBACCO ABUSE
  3. CHANTIX [Suspect]
     Indication: ASTHMA
  4. VITAMIN D [Concomitant]
  5. ALL OTHER THERAPEUTIC PRODUCTS [Concomitant]
  6. PROZAC [Concomitant]
  7. WELLBUTRIN [Concomitant]
  8. SYNTHROID [Concomitant]
  9. CALCIUM [Concomitant]
  10. ZYRTEC [Concomitant]
  11. KLONOPIN [Concomitant]
  12. OXYCODONE HCL [Concomitant]
  13. DURAGESIC-100 [Concomitant]
  14. IMITREX [Concomitant]
  15. LIPITOR [Concomitant]
  16. ACTONEL [Concomitant]
  17. MONTELUKAST SODIUM [Concomitant]
  18. LOMOTIL [Concomitant]

REACTIONS (17)
  - ABNORMAL DREAMS [None]
  - ADVERSE DRUG REACTION [None]
  - ANGER [None]
  - ANXIETY [None]
  - CRYING [None]
  - DEPRESSION [None]
  - DISTURBANCE IN ATTENTION [None]
  - DIZZINESS [None]
  - FEELING ABNORMAL [None]
  - FRUSTRATION [None]
  - HEADACHE [None]
  - HOSTILITY [None]
  - IMPATIENCE [None]
  - IRRITABILITY [None]
  - MOOD SWINGS [None]
  - SOCIAL AVOIDANT BEHAVIOUR [None]
  - SOMNOLENCE [None]
